FAERS Safety Report 8094432-0 (Version None)
Quarter: 2012Q1

REPORT INFORMATION
  Report Type: 
  Country: None (occurrence: None)
  Receive Date: 20120130
  Receipt Date: 20120119
  Transmission Date: 20120608
  Serious: Yes (Other)
  Sender: FDA-Public Use
  Company Number: FR-TEVA-319025ISR

PATIENT
  Sex: Male
  Weight: 76 kg

DRUGS (10)
  1. MYOLASTAN [Concomitant]
     Indication: MUSCLE SPASMS
     Dosage: 25 MILLIGRAM;
     Route: 048
     Dates: start: 20100409
  2. SPIRIVA [Concomitant]
     Indication: CHRONIC OBSTRUCTIVE PULMONARY DISEASE
     Dosage: 18 MICROGRAM;
     Route: 048
  3. DEXAMETHASONE [Suspect]
     Indication: MULTIPLE MYELOMA
     Dates: start: 20091120, end: 20101028
  4. LENALIDOMIDE [Suspect]
     Indication: MULTIPLE MYELOMA
     Route: 048
     Dates: start: 20091120, end: 20110114
  5. MAXAIR [Concomitant]
     Indication: CHRONIC OBSTRUCTIVE PULMONARY DISEASE
     Dates: start: 19990101
  6. SYMBICORT [Concomitant]
     Indication: CHRONIC OBSTRUCTIVE PULMONARY DISEASE
     Route: 055
  7. LYTOS [Concomitant]
     Indication: PROPHYLAXIS
     Dosage: 1040 MILLIGRAM;
     Route: 048
     Dates: start: 20101002
  8. LENALIDOMIDE [Suspect]
     Route: 048
     Dates: start: 20091120, end: 20110114
  9. PREVISCAN [Concomitant]
     Indication: THROMBOSIS PROPHYLAXIS
     Dosage: 20 MILLIGRAM;
     Route: 048
     Dates: start: 20080901
  10. DIGOXIN [Concomitant]
     Indication: ATRIAL FIBRILLATION
     Dosage: 250 MICROGRAM;
     Route: 048
     Dates: start: 20090901

REACTIONS (1)
  - PROSTATE CANCER STAGE II [None]
